FAERS Safety Report 7070475-0 (Version None)
Quarter: 2010Q4

REPORT INFORMATION
  Report Type: 
  Country: None (occurrence: None)
  Receive Date: 20101028
  Receipt Date: 20101028
  Transmission Date: 20110411
  Serious: No
  Sender: FDA-Public Use
  Company Number: None

PATIENT
  Sex: Female
  Weight: 75.7507 kg

DRUGS (1)
  1. ACTONEL [Suspect]
     Dosage: 35 MG WEEKLY
     Dates: start: 20050201, end: 20090101

REACTIONS (1)
  - ATRIAL FIBRILLATION [None]
